FAERS Safety Report 5842185-6 (Version None)
Quarter: 2008Q3

REPORT INFORMATION
  Report Type: 
  Country: None (occurrence: None)
  Receive Date: 20080812
  Receipt Date: 20080805
  Transmission Date: 20090109
  Serious: Yes (Other)
  Sender: FDA-Public Use
  Company Number: CA-ALLERGAN-0809685US

PATIENT
  Sex: Female

DRUGS (3)
  1. BOTOX [Suspect]
     Indication: MIGRAINE
     Dosage: UNK, SINGLE
  2. BOTOX [Suspect]
     Indication: BACK PAIN
     Dosage: UNK, SINGLE
     Dates: start: 20080701, end: 20080701
  3. BOTOX [Suspect]
     Indication: TEMPOROMANDIBULAR JOINT SYNDROME

REACTIONS (3)
  - DRUG INEFFECTIVE [None]
  - FACIAL PALSY [None]
  - INJECTION SITE PAIN [None]
